FAERS Safety Report 8385764 (Version 2)
Quarter: 2013Q2

REPORT INFORMATION
  Report Type: Spontaneous
  Country: US (occurrence: None)
  Receive Date: 20111221
  Receipt Date: 20121227
  Transmission Date: 20140414
  Serious: Yes (Other)
  Sender: FDA-Public Use
  Company Number: PHHY2011US19487

PATIENT
  Age: 77 Year
  Sex: Male

DRUGS (7)
  1. EXJADE (CGP 72670) DISPERSIBLE TABLET, 500MG [Suspect]
     Indication: HAEMOCHROMATOSIS
     Dosage: 1500 MG, DAILY, ORAL
     Route: 048
     Dates: start: 20101129, end: 20110125
  2. MESTINON [Concomitant]
  3. COUMADIN [Concomitant]
  4. LIPITOR [Concomitant]
  5. PREDNISONE [Concomitant]
  6. VITAMIN B12 [Concomitant]
  7. CYCLOSPORINE [Concomitant]

REACTIONS (2)
  - BLOOD CREATININE INCREASED [None]
  - Renal disorder [None]
